FAERS Safety Report 11758712 (Version 1)
Quarter: 2015Q4

REPORT INFORMATION
  Report Type: Spontaneous
  Country: US (occurrence: None)
  Receive Date: 20151119
  Receipt Date: 20151119
  Transmission Date: 20160304
  Serious: Yes (Hospitalization, Other)
  Sender: FDA-Public Use
  Company Number: None

PATIENT
  Age: 33 Year
  Sex: Male
  Weight: 81.65 kg

DRUGS (6)
  1. KNEE BRACE [Concomitant]
  2. LIDOCAINE PATCHES [Concomitant]
  3. DIAZEPAM. [Concomitant]
     Active Substance: DIAZEPAM
  4. OXYCODONE HYDROCHLORIDE TABS 5MG SUN PHARMA [Suspect]
     Active Substance: OXYCODONE HYDROCHLORIDE
     Indication: SPINAL OSTEOARTHRITIS
     Dosage: 2 PILLS
     Route: 048
     Dates: start: 20151111, end: 20151118
  5. OXYCODONE HYDROCHLORIDE TABS 5MG SUN PHARMA [Suspect]
     Active Substance: OXYCODONE HYDROCHLORIDE
     Indication: BACK PAIN
     Dosage: 2 PILLS
     Route: 048
     Dates: start: 20151111, end: 20151118
  6. OXYCODONE HYDROCHLORIDE TABS 5MG SUN PHARMA [Suspect]
     Active Substance: OXYCODONE HYDROCHLORIDE
     Indication: ARTHRALGIA
     Dosage: 2 PILLS
     Route: 048
     Dates: start: 20151111, end: 20151118

REACTIONS (3)
  - Drug ineffective [None]
  - Product quality issue [None]
  - Withdrawal syndrome [None]

NARRATIVE: CASE EVENT DATE: 20151111
